FAERS Safety Report 11483445 (Version 1)
Quarter: 2015Q3

REPORT INFORMATION
  Report Type: Spontaneous
  Country: US (occurrence: US)
  Receive Date: 20150903
  Receipt Date: 20150903
  Transmission Date: 20151125
  Serious: No
  Sender: FDA-Public Use
  Company Number: US-ELI_LILLY_AND_COMPANY-US201207000727

PATIENT
  Sex: Male

DRUGS (1)
  1. CYMBALTA [Suspect]
     Active Substance: DULOXETINE HYDROCHLORIDE
     Indication: MUSCULOSKELETAL PAIN
     Dosage: 20 MG, QD
     Dates: start: 201205, end: 20120618

REACTIONS (7)
  - Off label use [Unknown]
  - Malaise [Unknown]
  - Intentional product misuse [Unknown]
  - Daydreaming [Unknown]
  - Dizziness [Unknown]
  - Insomnia [Not Recovered/Not Resolved]
  - Tremor [Unknown]
